FAERS Safety Report 4958917-5 (Version None)
Quarter: 2006Q1

REPORT INFORMATION
  Report Type: 
  Country: None (occurrence: None)
  Receive Date: 20060331
  Receipt Date: 20060328
  Transmission Date: 20060701
  Serious: Yes (Other)
  Sender: FDA-Public Use
  Company Number: PHBS2006ES04556

PATIENT
  Age: 25 Year

DRUGS (2)
  1. TORECAN [Suspect]
     Indication: VERTIGO
     Dosage: 19 MG/DAY
     Route: 048
     Dates: start: 20060121, end: 20060122
  2. GARCINIA CAMBOGIA [Suspect]
     Dates: start: 20060121, end: 20060122

REACTIONS (2)
  - DRUG INTERACTION [None]
  - DYSKINESIA [None]
